FAERS Safety Report 17847845 (Version 2)
Quarter: 2020Q2

REPORT INFORMATION
  Report Type: Report from Study
  Country: MX (occurrence: MX)
  Receive Date: 20200601
  Receipt Date: 20200608
  Transmission Date: 20200714
  Serious: Yes (Death, Hospitalization, Other)
  Sender: FDA-Public Use
  Company Number: MX-BAYER-2020-066934

PATIENT
  Age: 76 Year
  Sex: Male

DRUGS (1)
  1. NEXAVAR [Suspect]
     Active Substance: SORAFENIB
     Indication: THYROID CANCER
     Dosage: 400 MILLIGRAMS IN THE MORNING AND 200 MILLIGRAMS AT NIGHT
     Route: 048
     Dates: start: 20200320, end: 20200508

REACTIONS (9)
  - Cardiac arrest [Fatal]
  - Dry skin [Not Recovered/Not Resolved]
  - Platelet count decreased [Recovering/Resolving]
  - Headache [Not Recovered/Not Resolved]
  - Blister [Not Recovered/Not Resolved]
  - Dizziness [Recovering/Resolving]
  - Off label use [None]
  - Blood pressure increased [Recovered/Resolved with Sequelae]
  - Epistaxis [Recovered/Resolved]

NARRATIVE: CASE EVENT DATE: 20200320
